FAERS Safety Report 21260587 (Version 1)
Quarter: 2022Q3

REPORT INFORMATION
  Report Type: Spontaneous
  Country: PK (occurrence: PK)
  Receive Date: 20220826
  Receipt Date: 20220826
  Transmission Date: 20221027
  Serious: Yes (Death)
  Sender: FDA-Public Use
  Company Number: PK-PFIZER INC-2020110814

PATIENT
  Age: 67 Year
  Sex: Male

DRUGS (2)
  1. SUTENT [Suspect]
     Active Substance: SUNITINIB MALATE
     Indication: Gastrointestinal stromal tumour
     Dosage: 50 MG, 1X/DAY
     Route: 048
     Dates: start: 201912, end: 20220726
  2. LASIX [Concomitant]
     Active Substance: FUROSEMIDE

REACTIONS (5)
  - Death [Fatal]
  - Product prescribing error [Unknown]
  - Off label use [Unknown]
  - Product use issue [Unknown]
  - Blood pressure increased [Unknown]

NARRATIVE: CASE EVENT DATE: 20210201
